FAERS Safety Report 9402931 (Version 2)
Quarter: 2013Q4

REPORT INFORMATION
  Report Type: Report from Study
  Country: CR (occurrence: CR)
  Receive Date: 20130716
  Receipt Date: 20131022
  Transmission Date: 20140711
  Serious: Yes (Life-Threatening, Hospitalization)
  Sender: FDA-Public Use
  Company Number: CR-ROCHE-1235362

PATIENT
  Age: 49 Year
  Sex: Female
  Weight: 115 kg

DRUGS (12)
  1. TRASTUZUMAB [Suspect]
     Indication: BREAST CANCER METASTATIC
     Dosage: LOADING DOSE AS PER PROTOCOL.
     Route: 042
     Dates: start: 20090911, end: 20090911
  2. TRASTUZUMAB [Suspect]
     Dosage: MAINTENANCE DOSE AS PER PROTOCOL. THE LAST DOSE PRIOR TO THE EVENT WAS ON 15/MAY/2013. TEMPORARILY I
     Route: 042
     Dates: end: 20130607
  3. TRASTUZUMAB [Suspect]
     Route: 042
     Dates: start: 20130617
  4. ENALAPRIL [Concomitant]
     Route: 065
     Dates: start: 2010
  5. HYDROCHLOROTHIAZIDE [Concomitant]
     Route: 065
     Dates: start: 2010
  6. LEVOTHYROXINE [Concomitant]
     Route: 065
     Dates: start: 20090301
  7. CLONAZEPAM [Concomitant]
     Route: 065
     Dates: start: 20090826
  8. EPIVAL [Concomitant]
     Route: 065
     Dates: start: 20090826
  9. FLUOXETINE [Concomitant]
     Route: 065
     Dates: start: 20090826
  10. PLACEBO [Suspect]
     Indication: BREAST CANCER METASTATIC
     Dosage: LOADING DOSE AS PER PROTOCOL.
     Route: 042
     Dates: start: 20090910, end: 20090910
  11. PLACEBO [Suspect]
     Dosage: MAINTENANCE DOSE AS PER PROTOCOL. THE LAST DOSE PRIOR TO THE EVENT WAS ON 15/MAY/2013. TEMPORARILY I
     Route: 042
     Dates: end: 20130607
  12. PLACEBO [Suspect]
     Route: 042
     Dates: start: 20130617

REACTIONS (2)
  - Dehydration [Recovered/Resolved]
  - Diarrhoea [Recovered/Resolved]
